FAERS Safety Report 8281651-3 (Version None)
Quarter: 2012Q2

REPORT INFORMATION
  Report Type: 
  Country: None (occurrence: None)
  Receive Date: 20120413
  Receipt Date: 20120409
  Transmission Date: 20120825
  Serious: Yes (Other)
  Sender: FDA-Public Use
  Company Number: JP-PFIZER INC-2012068830

PATIENT
  Age: 15 Year
  Sex: Female

DRUGS (3)
  1. GROWTH HORMONE AB [Concomitant]
     Indication: PITUITARY TUMOUR BENIGN
  2. LEVOTHYROXINE SODIUM [Concomitant]
     Indication: HORMONE REPLACEMENT THERAPY
     Dosage: 50 UG, 2X/DAY
     Route: 048
     Dates: start: 20120305
  3. CORTRIL [Suspect]
     Indication: HORMONE REPLACEMENT THERAPY
     Dosage: 10 MG, 2X/DAY
     Route: 048
     Dates: start: 20120305

REACTIONS (2)
  - MENINGITIS [None]
  - PYREXIA [None]
